FAERS Safety Report 9060629 (Version 3)
Quarter: 2013Q2

REPORT INFORMATION
  Report Type: Spontaneous
  Country: US (occurrence: US)
  Receive Date: 20130212
  Receipt Date: 20130513
  Transmission Date: 20140414
  Serious: Yes (Death, Hospitalization)
  Sender: FDA-Public Use
  Company Number: US-B.I. PHARMACEUTICALS,INC./RIDGEFIELD-2013-BI-03550BP

PATIENT
  Age: 71 Year
  Sex: Female
  Weight: 57.61 kg

DRUGS (1)
  1. SPIRIVA [Suspect]
     Indication: CHRONIC OBSTRUCTIVE PULMONARY DISEASE
     Dosage: 18 MCG
     Route: 055
     Dates: start: 2010

REACTIONS (5)
  - Arthralgia [Fatal]
  - Renal failure acute [Fatal]
  - Acute respiratory failure [Fatal]
  - Cardiac failure congestive [Fatal]
  - Chronic obstructive pulmonary disease [Fatal]
